FAERS Safety Report 8456221 (Version 2)
Quarter: 2013Q2

REPORT INFORMATION
  Report Type: Spontaneous
  Country: US (occurrence: None)
  Receive Date: 20120221
  Receipt Date: 20120518
  Transmission Date: 20140414
  Serious: No
  Sender: FDA-Public Use
  Company Number: 1000026919

PATIENT
  Age: 25 Year
  Sex: Male

DRUGS (1)
  1. VIIBRYD [Suspect]
     Indication: DEPRESSION
     Dosage: 10 MG (10 MG,1 IN 1 D),ORAL
     Route: 048
     Dates: start: 201112, end: 201112

REACTIONS (2)
  - INSOMNIA [None]
  - Sleep disorder [None]
